FAERS Safety Report 17409385 (Version 2)
Quarter: 2020Q4

REPORT INFORMATION
  Report Type: Spontaneous
  Country: FR (occurrence: FR)
  Receive Date: 20200212
  Receipt Date: 20201013
  Transmission Date: 20210113
  Serious: Yes (Hospitalization, Other)
  Sender: FDA-Public Use
  Company Number: FR-PFIZER INC-2020061864

PATIENT
  Age: 40 Year
  Sex: Female

DRUGS (1)
  1. LORVIQUA [Suspect]
     Active Substance: LORLATINIB
     Dosage: UNK
     Dates: start: 201910

REACTIONS (11)
  - Hypertriglyceridaemia [Unknown]
  - Affective disorder [Unknown]
  - Weight increased [Unknown]
  - Dyspnoea [Recovered/Resolved]
  - Mean cell volume increased [Recovered/Resolved]
  - Folate deficiency [Recovered/Resolved]
  - Fatigue [Recovered/Resolved]
  - Vitamin B12 deficiency [Recovered/Resolved]
  - Anaemia [Recovered/Resolved]
  - Hypercholesterolaemia [Unknown]
  - Pallor [Recovered/Resolved]
